FAERS Safety Report 12598447 (Version 2)
Quarter: 2016Q3

REPORT INFORMATION
  Report Type: Spontaneous
  Country: CO (occurrence: MX)
  Receive Date: 20160726
  Receipt Date: 20160822
  Transmission Date: 20161109
  Serious: Yes (Life-Threatening, Hospitalization, Other)
  Sender: FDA-Public Use
  Company Number: MX-ALLERGAN-1663466US

PATIENT
  Age: 65 Year
  Sex: Female

DRUGS (1)
  1. BOTOX [Suspect]
     Active Substance: ONABOTULINUMTOXINA
     Indication: TORTICOLLIS
     Dosage: UNK, SINGLE
     Route: 030

REACTIONS (10)
  - Dysphagia [Recovered/Resolved]
  - Paralysis [Recovered/Resolved]
  - Palatal disorder [Recovered/Resolved]
  - Muscular weakness [Recovered/Resolved]
  - Uvular spasm [Recovered/Resolved]
  - Dysarthria [Recovered/Resolved]
  - Chest pain [Recovered/Resolved]
  - Respiratory failure [Recovered/Resolved]
  - Dyspnoea [Recovered/Resolved]
  - Botulism [Recovered/Resolved]
